FAERS Safety Report 6253748-0 (Version None)
Quarter: 2009Q3

REPORT INFORMATION
  Report Type: 
  Country: None (occurrence: None)
  Receive Date: 20090701
  Receipt Date: 20090626
  Transmission Date: 20100115
  Serious: Yes (Hospitalization)
  Sender: FDA-Public Use
  Company Number: US-GILEAD-2009-0022826

PATIENT
  Sex: Female

DRUGS (18)
  1. LETAIRIS [Suspect]
     Indication: PULMONARY ARTERIAL HYPERTENSION
     Route: 048
     Dates: start: 20090114
  2. LOTENSIN [Concomitant]
  3. TOPROL-XL [Concomitant]
  4. AMLODIPINE [Concomitant]
  5. ASPIRIN [Concomitant]
  6. PLAVIX [Concomitant]
  7. ALBUTEROL [Concomitant]
  8. CELLCEPT [Concomitant]
  9. PREDNISONE [Concomitant]
  10. SERTRALINE [Concomitant]
  11. ALPRAZOLAM [Concomitant]
  12. ACTONEL [Concomitant]
  13. LEVOTHYROXINE SODIUM [Concomitant]
  14. ULTRACET [Concomitant]
  15. LORATADINE [Concomitant]
  16. ACIPHEX [Concomitant]
  17. AMITRIPTYLINE HCL [Concomitant]
  18. OMEPRAZOLE [Concomitant]

REACTIONS (2)
  - CARDIAC FAILURE CONGESTIVE [None]
  - OEDEMA [None]
